FAERS Safety Report 5811407-X (Version None)
Quarter: 2008Q3

REPORT INFORMATION
  Report Type: 
  Country: None (occurrence: None)
  Receive Date: 20080702
  Receipt Date: 20080623
  Transmission Date: 20090109
  Serious: Yes (Life-Threatening)
  Sender: FDA-Public Use
  Company Number: THYM-10895

PATIENT
  Age: 65 Year
  Sex: Male
  Weight: 114.4 kg

DRUGS (16)
  1. THYMOGLOBULIN [Suspect]
     Indication: LIVER TRANSPLANT
     Dosage: 175 MG, QD, INTRAVENOUS; 175 MG, QD, INTRAVENOUS
     Route: 042
     Dates: start: 20060226, end: 20060228
  2. THYMOGLOBULIN [Suspect]
     Indication: LIVER TRANSPLANT
     Dosage: 175 MG, QD, INTRAVENOUS; 175 MG, QD, INTRAVENOUS
     Route: 042
     Dates: start: 20060302, end: 20060302
  3. FLAGYL [Concomitant]
  4. ADVAIR DISKUS 100/50 [Concomitant]
  5. LACTULOSE [Concomitant]
  6. MIDODRINE [Concomitant]
  7. OCTREOTIDE ACETATE [Concomitant]
  8. PROTONIX [Concomitant]
  9. MEPHYTON (PHYTOMENADIONE) [Concomitant]
  10. ULTRAM [Concomitant]
  11. ALBUTEROL [Concomitant]
  12. CELLCEPT [Concomitant]
  13. CEFIZOX [Concomitant]
  14. SOLU-MEDROL [Concomitant]
  15. ACETAMINOPHEN [Concomitant]
  16. BENADRYL [Concomitant]

REACTIONS (6)
  - BLOOD POTASSIUM INCREASED [None]
  - EJECTION FRACTION DECREASED [None]
  - ELECTROMECHANICAL DISSOCIATION [None]
  - SINUS TACHYCARDIA [None]
  - VENTRICULAR FIBRILLATION [None]
  - VENTRICULAR TACHYCARDIA [None]
